FAERS Safety Report 21349903 (Version 1)
Quarter: 2022Q3

REPORT INFORMATION
  Report Type: Spontaneous
  Country: US (occurrence: US)
  Receive Date: 20220919
  Receipt Date: 20220919
  Transmission Date: 20221027
  Serious: No
  Sender: FDA-Public Use
  Company Number: US-TAKEDA-2022TUS065224

PATIENT
  Sex: Male
  Weight: 61.2 kg

DRUGS (1)
  1. GAMMAGARD LIQUID [Suspect]
     Active Substance: HUMAN IMMUNOGLOBULIN G
     Indication: Paediatric acute-onset neuropsychiatric syndrome
     Dosage: 2 G/KG
     Route: 065
     Dates: end: 202201

REACTIONS (2)
  - Off label use [Unknown]
  - No adverse event [Unknown]
